FAERS Safety Report 23500999 (Version 1)
Quarter: 2024Q1

REPORT INFORMATION
  Report Type: Report from Study
  Country: US (occurrence: US)
  Receive Date: 20240208
  Receipt Date: 20240208
  Transmission Date: 20240409
  Serious: Yes (Hospitalization)
  Sender: FDA-Public Use
  Company Number: US-Eisai-EC-2024-158588

PATIENT
  Age: 15 Year
  Sex: Male

DRUGS (2)
  1. LENVIMA [Suspect]
     Active Substance: LENVATINIB
     Indication: Hepatic cancer
     Route: 048
     Dates: start: 20231202
  2. GEMCITABINE [Concomitant]
     Active Substance: GEMCITABINE
     Indication: Hepatic cancer
     Dosage: DOSE UNKNOWN
     Route: 042

REACTIONS (1)
  - Ammonia increased [Recovering/Resolving]

NARRATIVE: CASE EVENT DATE: 20240101
